FAERS Safety Report 10511748 (Version 1)
Quarter: 2014Q4

REPORT INFORMATION
  Report Type: Spontaneous
  Country: US (occurrence: US)
  Receive Date: 20141010
  Receipt Date: 20141010
  Transmission Date: 20150528
  Serious: Yes (Hospitalization)
  Sender: FDA-Public Use
  Company Number: US-ELI_LILLY_AND_COMPANY-US201409010867

PATIENT
  Sex: Female

DRUGS (5)
  1. SIMVASTATIN. [Concomitant]
     Active Substance: SIMVASTATIN
     Indication: PRODUCT USED FOR UNKNOWN INDICATION
     Dosage: UNK, UNKNOWN
     Route: 065
  2. CYMBALTA [Suspect]
     Active Substance: DULOXETINE HYDROCHLORIDE
     Indication: DEPRESSION
     Dosage: 30 MG, BID
     Route: 048
  3. CYMBALTA [Suspect]
     Active Substance: DULOXETINE HYDROCHLORIDE
     Indication: ARTHRALGIA
  4. SOMA [Concomitant]
     Active Substance: CARISOPRODOL
     Indication: PRODUCT USED FOR UNKNOWN INDICATION
     Dosage: UNK, UNKNOWN
     Route: 065
  5. METFORMIN [Concomitant]
     Active Substance: METFORMIN HYDROCHLORIDE
     Indication: PRODUCT USED FOR UNKNOWN INDICATION
     Dosage: UNK, UNKNOWN
     Route: 065

REACTIONS (21)
  - Suicidal ideation [Unknown]
  - Headache [Unknown]
  - Frustration [Unknown]
  - Insomnia [Unknown]
  - Discomfort [Unknown]
  - Feeling abnormal [Unknown]
  - Crying [Unknown]
  - Blood glucose increased [Unknown]
  - Confusional state [Unknown]
  - Mania [Unknown]
  - Asthenia [Unknown]
  - Paraesthesia [Unknown]
  - Blood cholesterol increased [Unknown]
  - Drug withdrawal syndrome [Unknown]
  - Food craving [Unknown]
  - Communication disorder [Unknown]
  - Arthralgia [Unknown]
  - Malaise [Unknown]
  - Inappropriate affect [Unknown]
  - Intentional product misuse [Unknown]
  - Anger [Unknown]

NARRATIVE: CASE EVENT DATE: 201409
